FAERS Safety Report 7216862-9 (Version None)
Quarter: 2011Q1

REPORT INFORMATION
  Report Type: 
  Country: None (occurrence: None)
  Receive Date: 20110104
  Receipt Date: 20110104
  Transmission Date: 20110831
  Serious: Yes (Other)
  Sender: FDA-Public Use
  Company Number: None

PATIENT
  Age: 46 Year
  Sex: Male
  Weight: 70.3075 kg

DRUGS (1)
  1. BUPRENORPHINE [Suspect]
     Dosage: 1/2/PILL PER DAY SL
     Route: 060
     Dates: start: 20070401, end: 20101001

REACTIONS (1)
  - DRUG WITHDRAWAL SYNDROME [None]
